FAERS Safety Report 7681454-4 (Version None)
Quarter: 2011Q3

REPORT INFORMATION
  Report Type: 
  Country: None (occurrence: None)
  Receive Date: 20110812
  Receipt Date: 20110805
  Transmission Date: 20111222
  Serious: Yes (Hospitalization, Other)
  Sender: FDA-Public Use
  Company Number: US-US-EMD SERONO, INC.-7075682

PATIENT
  Sex: Female

DRUGS (1)
  1. REBIF [Suspect]
     Indication: MULTIPLE SCLEROSIS
     Route: 058
     Dates: start: 20040308

REACTIONS (10)
  - NUCLEAR MAGNETIC RESONANCE IMAGING ABNORMAL [None]
  - VITAMIN D DEFICIENCY [None]
  - DYSPNOEA [None]
  - LOWER LIMB FRACTURE [None]
  - NON-CARDIAC CHEST PAIN [None]
  - FALL [None]
  - INJECTION SITE REACTION [None]
  - TENDON DISORDER [None]
  - INJECTION SITE MASS [None]
  - HYPOAESTHESIA [None]
